FAERS Safety Report 20516822 (Version 1)
Quarter: 2022Q1

REPORT INFORMATION
  Report Type: Report from Study
  Country: LB (occurrence: LB)
  Receive Date: 20220225
  Receipt Date: 20220225
  Transmission Date: 20220423
  Serious: Yes (Hospitalization, Other)
  Sender: FDA-Public Use
  Company Number: LB-ABBVIE-22K-093-4292002-00

PATIENT
  Age: 44 Year
  Sex: Female

DRUGS (6)
  1. HUMIRA [Suspect]
     Active Substance: ADALIMUMAB
     Indication: Ankylosing spondylitis
     Route: 058
     Dates: start: 20210106, end: 20210120
  2. HUMIRA [Suspect]
     Active Substance: ADALIMUMAB
     Route: 058
     Dates: start: 20210305, end: 202109
  3. HUMIRA [Suspect]
     Active Substance: ADALIMUMAB
     Route: 058
     Dates: start: 202110, end: 20220207
  4. COLCHICINE [Concomitant]
     Active Substance: COLCHICINE
     Indication: Product used for unknown indication
  5. PFIZER-BIONTECH COVID-19 VACCINE [Concomitant]
     Active Substance: TOZINAMERAN
     Indication: COVID-19 immunisation
     Dosage: FIRST DOSE
     Route: 030
     Dates: start: 20210606, end: 20210606
  6. PFIZER-BIONTECH COVID-19 VACCINE [Concomitant]
     Active Substance: TOZINAMERAN
     Dosage: SECOND DOSE
     Route: 030
     Dates: start: 20210728, end: 20210728

REACTIONS (5)
  - Uterine prolapse [Recovered/Resolved]
  - Prolapse repair [Recovered/Resolved]
  - Intra-abdominal haematoma [Recovered/Resolved]
  - Internal haemorrhage [Recovered/Resolved]
  - Post procedural complication [Recovered/Resolved]

NARRATIVE: CASE EVENT DATE: 20220215
